FAERS Safety Report 6691487-2 (Version None)
Quarter: 2010Q2

REPORT INFORMATION
  Report Type: 
  Country: None (occurrence: None)
  Receive Date: 20100414
  Receipt Date: 20090518
  Transmission Date: 20101027
  Serious: Yes (Other)
  Sender: FDA-Public Use
  Company Number: 09-222

PATIENT
  Age: 68 Year
  Sex: Female

DRUGS (2)
  1. ALEVE [Suspect]
     Indication: PAIN
     Dosage: 660 MG, DAILY, ORAL
     Route: 048
     Dates: start: 20090301
  2. GLYBURTIDE [Concomitant]

REACTIONS (1)
  - HYPERTENSION [None]
